FAERS Safety Report 21665176 (Version 1)
Quarter: 2022Q4

REPORT INFORMATION
  Report Type: Spontaneous
  Country: US (occurrence: US)
  Receive Date: 20221130
  Receipt Date: 20221130
  Transmission Date: 20230112
  Serious: Yes (Hospitalization, Other)
  Sender: FDA-Public Use
  Company Number: US-drreddys-LIT/USA/22/0157674

PATIENT
  Age: 67 Year
  Sex: Male

DRUGS (10)
  1. DEXAMETHASONE SODIUM PHOSPHATE [Suspect]
     Active Substance: DEXAMETHASONE SODIUM PHOSPHATE
     Indication: Plasma cell myeloma
     Dosage: 40MG ON DAYS 1, 8, 15 AND 22 (CYCLES 1?6) FOLLOWED BY 20MG ON DAYS 1, 8, 15 AND 22 BETWEEN CYCLES 7
  2. DEXAMETHASONE SODIUM PHOSPHATE [Suspect]
     Active Substance: DEXAMETHASONE SODIUM PHOSPHATE
     Dosage: 40MG ON DAYS 1, 8, 15 AND 22 (CYCLES 1?6) FOLLOWED BY 20MG ON DAYS 1, 8, 15 AND 22 BETWEEN CYCLES 7
  3. LENALIDOMIDE [Concomitant]
     Active Substance: LENALIDOMIDE
     Indication: Plasma cell myeloma
     Dosage: 25MG DAILY FROM DAY-1 TO DAY-21 WITH 7-DAY REST TIME (CYCLES 1?24)
  4. LENALIDOMIDE [Concomitant]
     Active Substance: LENALIDOMIDE
     Dosage: 15MG AT CYCLE 5.  10MG BY CYCLE 6 AND 5MG BY CYCLE 10.
  5. LENALIDOMIDE [Concomitant]
     Active Substance: LENALIDOMIDE
     Dosage: 15MG AT CYCLE 5.  10MG BY CYCLE 6 AND 5MG BY CYCLE 10.
  6. LENALIDOMIDE [Concomitant]
     Active Substance: LENALIDOMIDE
     Dosage: 15MG AT CYCLE 5.  10MG BY CYCLE 6 AND 5MG BY CYCLE 10.
  7. LENALIDOMIDE [Concomitant]
     Active Substance: LENALIDOMIDE
     Dosage: 15MG AT CYCLE 5.  10MG BY CYCLE 6 AND 5MG BY CYCLE 10.
  8. ASPIRIN [Concomitant]
     Active Substance: ASPIRIN
     Indication: Embolism venous
  9. METOPROLOL SUCCINATE [Concomitant]
     Active Substance: METOPROLOL SUCCINATE
     Indication: Product used for unknown indication
  10. LISINOPRIL [Concomitant]
     Active Substance: LISINOPRIL
     Indication: Product used for unknown indication

REACTIONS (9)
  - Pulmonary venous thrombosis [Unknown]
  - Dyspnoea [Unknown]
  - Left ventricular hypertrophy [Unknown]
  - Hepatic enzyme increased [Unknown]
  - Dyspnoea [Unknown]
  - Arteriosclerosis [Unknown]
  - Neutropenia [Unknown]
  - Syncope [Unknown]
  - Product use in unapproved indication [Unknown]
